FAERS Safety Report 5085423-2 (Version None)
Quarter: 2006Q3

REPORT INFORMATION
  Report Type: 
  Country: None (occurrence: None)
  Receive Date: 20060817
  Receipt Date: 20060803
  Transmission Date: 20061208
  Serious: Yes (Hospitalization, Other)
  Sender: FDA-Public Use
  Company Number: 2006096636

PATIENT
  Age: 94 Year
  Sex: Female
  Weight: 61.2356 kg

DRUGS (1)
  1. CELEBREX [Suspect]
     Indication: ARTHRITIS
     Dosage: (200 MG, 1-2 DAILY), UNKNOWN
     Dates: start: 20000727

REACTIONS (5)
  - CEREBROVASCULAR ACCIDENT [None]
  - HEART INJURY [None]
  - HYPERTENSION [None]
  - RASH [None]
  - VASCULAR INJURY [None]
